FAERS Safety Report 10207136 (Version 2)
Quarter: 2014Q2

REPORT INFORMATION
  Report Type: Spontaneous
  Country: FR (occurrence: FR)
  Receive Date: 20140530
  Receipt Date: 20140630
  Transmission Date: 20141212
  Serious: Yes (Other)
  Sender: FDA-Public Use
  Company Number: FR-TEVA-483603ISR

PATIENT
  Age: 66 Year
  Sex: Male
  Weight: 105 kg

DRUGS (7)
  1. IRBESARTAN TEVA 300 MG [Suspect]
     Dosage: 300 MILLIGRAM DAILY;
     Route: 048
     Dates: start: 201310, end: 201402
  2. AMLODIPINE [Concomitant]
     Dosage: 5 MILLIGRAM DAILY;
     Route: 048
  3. TADENAN [Concomitant]
     Route: 048
  4. MODAMIDE 5MG [Concomitant]
     Dosage: 10 MILLIGRAM DAILY;
     Route: 048
  5. NEBIVOLOL 5 MG [Concomitant]
     Dosage: 5 MILLIGRAM DAILY;
     Route: 048
  6. DAFLON [Concomitant]
     Dosage: 3 DOSAGE FORMS DAILY;
     Route: 048
  7. DOLIPRANE [Concomitant]
     Dosage: 3 DOSAGE FORMS DAILY;
     Route: 048

REACTIONS (4)
  - Prostate infection [Recovered/Resolved]
  - Sensitisation [Recovered/Resolved]
  - Nipple swelling [Recovered/Resolved]
  - Prostatic pain [Recovered/Resolved]
